FAERS Safety Report 10944140 (Version 2)
Quarter: 2015Q1

REPORT INFORMATION
  Report Type: Spontaneous
  Country: BR (occurrence: BR)
  Receive Date: 20150323
  Receipt Date: 20150326
  Transmission Date: 20150721
  Serious: Yes (Other)
  Sender: FDA-Public Use
  Company Number: BR-TAKEDA-2015TJP004555

PATIENT
  Sex: Male
  Weight: 82 kg

DRUGS (6)
  1. METFORMIN HYDROCHLORIDE. [Concomitant]
     Active Substance: METFORMIN HYDROCHLORIDE
     Dosage: IN THE MORNING AND AT NIGHT, DAILY DOSE: 850 MG, BID
     Route: 048
     Dates: start: 20150305
  2. AMARYL [Concomitant]
     Active Substance: GLIMEPIRIDE
     Indication: DIABETES MELLITUS
     Dosage: IN THE MORNING WITH ACTOS, DAILY DOSE: 4 MG, QD
     Route: 048
     Dates: start: 2007, end: 20150304
  3. AMARYL [Concomitant]
     Active Substance: GLIMEPIRIDE
     Dosage: IN THE MORNING WITH ACTOS; DAILY DOSE: 4 MG, QD
     Route: 048
     Dates: start: 20150305
  4. ACTOS [Suspect]
     Active Substance: PIOGLITAZONE HYDROCHLORIDE
     Dosage: IN THE MORNING; DAILY DOSE: 45 MG, QD
     Route: 048
     Dates: start: 20150305, end: 20150309
  5. METFORMIN HYDROCHLORIDE. [Concomitant]
     Active Substance: METFORMIN HYDROCHLORIDE
     Indication: DIABETES MELLITUS
     Dosage: IN THE MORNING AND AT NIGHT, DAILY DOSE: 850 MG, BID
     Route: 048
     Dates: end: 20150304
  6. ACTOS [Suspect]
     Active Substance: PIOGLITAZONE HYDROCHLORIDE
     Indication: DIABETES MELLITUS
     Dosage: IN THE MORNING AFTER BREAKFAST, DAILY DOSE: 45 MG, QD
     Route: 048
     Dates: start: 2014, end: 20150304

REACTIONS (2)
  - Eyelid cyst [Recovered/Resolved]
  - Eye inflammation [Recovered/Resolved]

NARRATIVE: CASE EVENT DATE: 2014
